FAERS Safety Report 20965214 (Version 3)
Quarter: 2024Q2

REPORT INFORMATION
  Report Type: Spontaneous
  Country: US (occurrence: US)
  Receive Date: 20220616
  Receipt Date: 20240528
  Transmission Date: 20240716
  Serious: Yes (Other)
  Sender: FDA-Public Use
  Company Number: US-JNJFOC-20220614384

PATIENT
  Sex: Female

DRUGS (15)
  1. ELMIRON [Suspect]
     Active Substance: PENTOSAN POLYSULFATE SODIUM
     Indication: Cystitis interstitial
     Dosage: 100 MG 3 TIMES A DAY
     Route: 048
     Dates: start: 2016, end: 2021
  2. ATENOLOL [Concomitant]
     Active Substance: ATENOLOL
     Indication: Hypertension
     Dates: start: 1997
  3. FERROUS SULFATE [Concomitant]
     Active Substance: FERROUS SULFATE
     Indication: Iron deficiency
     Dates: start: 2020
  4. TRAMADOL [Concomitant]
     Active Substance: TRAMADOL\TRAMADOL HYDROCHLORIDE
     Indication: Pain
     Dates: start: 2020
  5. LEVOTHYROXINE [Concomitant]
     Active Substance: LEVOTHYROXINE\LEVOTHYROXINE SODIUM
     Indication: Thyroid disorder
     Dates: start: 2002
  6. OTEZLA [Concomitant]
     Active Substance: APREMILAST
     Indication: Psoriasis
     Dates: start: 2021
  7. LOVASTATIN [Concomitant]
     Active Substance: LOVASTATIN
     Indication: Blood cholesterol increased
     Dates: start: 2002
  8. VITAMIN D3 [Concomitant]
     Active Substance: CHOLECALCIFEROL
     Indication: Vitamin D deficiency
     Dates: start: 2016
  9. BACLOFEN [Concomitant]
     Active Substance: BACLOFEN
     Indication: Pain
     Dates: start: 2002
  10. BACLOFEN [Concomitant]
     Active Substance: BACLOFEN
     Indication: Muscle relaxant therapy
  11. DULOXETINE [Concomitant]
     Active Substance: DULOXETINE
     Indication: Arthralgia
     Dates: start: 2015
  12. LANTUS [Concomitant]
     Active Substance: INSULIN GLARGINE
     Indication: Diabetes mellitus
     Dates: start: 2002
  13. HUMALOG [Concomitant]
     Active Substance: INSULIN LISPRO
     Indication: Diabetes mellitus
     Dates: start: 2002
  14. GABAPENTIN [Concomitant]
     Active Substance: GABAPENTIN
     Indication: Arthralgia
     Dates: start: 2002
  15. PREGABALIN [Concomitant]
     Active Substance: PREGABALIN
     Indication: Arthralgia
     Dates: start: 2016

REACTIONS (3)
  - Macular degeneration [Not Recovered/Not Resolved]
  - Cystoid macular oedema [Recovering/Resolving]
  - Retinal pigmentation [Unknown]

NARRATIVE: CASE EVENT DATE: 20210101
